FAERS Safety Report 9190283 (Version 1)
Quarter: 2013Q1

REPORT INFORMATION
  Report Type: Spontaneous
  Country: SE (occurrence: None)
  Receive Date: 20130322
  Receipt Date: 20130322
  Transmission Date: 20140127
  Serious: Yes (Hospitalization)
  Sender: FDA-Public Use
  Company Number: SE-011176

PATIENT
  Age: 89 Year
  Sex: Female

DRUGS (2)
  1. MINIRIN [Suspect]
     Indication: PRODUCT USED FOR UNKNOWN INDICATION
  2. VESICARE [Suspect]
     Indication: URINARY INCONTINENCE

REACTIONS (5)
  - Hyponatraemia [None]
  - Cognitive disorder [None]
  - Anaemia [None]
  - Myelodysplastic syndrome [None]
  - Urinary tract infection [None]
